FAERS Safety Report 5488296-9 (Version None)
Quarter: 2007Q4

REPORT INFORMATION
  Report Type: 
  Country: None (occurrence: None)
  Receive Date: 20071017
  Receipt Date: 20071005
  Transmission Date: 20080405
  Serious: Yes (Hospitalization, Other)
  Sender: FDA-Public Use
  Company Number: US-ROCHE-523711

PATIENT
  Age: 72 Year
  Sex: Female

DRUGS (5)
  1. BONIVA [Suspect]
     Indication: DRUG USE FOR UNKNOWN INDICATION
     Dosage: PURCHASED ON: 26-JUL-2006, 23-AUG-2006, 02-NOV-2006, 09-DEC-2006, 05-MAR-2007, 05-APR-2007, 01-MAY-+
     Route: 065
     Dates: start: 20060806, end: 20060901
  2. BONIVA [Suspect]
     Route: 065
     Dates: start: 20061101, end: 20061206
  3. BONIVA [Suspect]
     Route: 065
     Dates: start: 20070306
  4. MULTI-VITAMINS [Concomitant]
     Dosage: ^DAILY^; DOSE UNSPECIFIED.
  5. CALCIUM [Concomitant]

REACTIONS (7)
  - BACK PAIN [None]
  - BASAL CELL CARCINOMA [None]
  - BURNING SENSATION [None]
  - DYSPEPSIA [None]
  - NECK PAIN [None]
  - PAIN IN EXTREMITY [None]
  - TOOTH EXTRACTION [None]
